FAERS Safety Report 9914963 (Version 1)
Quarter: 2014Q1

REPORT INFORMATION
  Report Type: Spontaneous
  Country: GB (occurrence: GB)
  Receive Date: 20140220
  Receipt Date: 20140220
  Transmission Date: 20141002
  Serious: Yes (Hospitalization)
  Sender: FDA-Public Use
  Company Number: PHHY2014GB017582

PATIENT
  Sex: Male

DRUGS (1)
  1. AZITHROMYCIN DIHYDRATE SANDOZ [Suspect]
     Indication: SEXUALLY TRANSMITTED DISEASE
     Dosage: 500 MG, UNK
     Route: 048

REACTIONS (3)
  - Haematemesis [Unknown]
  - Malaise [Unknown]
  - Incorrect dose administered [Unknown]
